FAERS Safety Report 17215672 (Version 1)
Quarter: 2019Q4

REPORT INFORMATION
  Report Type: Spontaneous
  Country: PT (occurrence: PT)
  Receive Date: 20191230
  Receipt Date: 20191230
  Transmission Date: 20200122
  Serious: Yes (Other)
  Sender: FDA-Public Use
  Company Number: PT-MYLANLABS-2019M1129614

PATIENT
  Age: 71 Year
  Sex: Male

DRUGS (5)
  1. TANSULOSINA MYLAN 0,4 MG C?PSULAS DE LIBERTA??O PROLONGADA [Suspect]
     Active Substance: TAMSULOSIN HYDROCHLORIDE
     Indication: BENIGN PROSTATIC HYPERPLASIA
     Dosage: 1 CP/DIA
     Route: 048
     Dates: start: 20190704, end: 20190708
  2. RAMIPRIL. [Concomitant]
     Active Substance: RAMIPRIL
     Dosage: 2.5 MILLIGRAM, QD
     Route: 048
  3. BILASTINE [Concomitant]
     Active Substance: BILASTINE
     Dosage: 10 MILLIGRAM
     Route: 048
  4. ESOMEPRAZOLE. [Concomitant]
     Active Substance: ESOMEPRAZOLE MAGNESIUM
     Dosage: EM JEJUM
     Route: 048
  5. RILUZOLE. [Concomitant]
     Active Substance: RILUZOLE
     Dosage: 100 MILLIGRAM, QD
     Route: 048

REACTIONS (1)
  - Lip oedema [Recovered/Resolved]

NARRATIVE: CASE EVENT DATE: 20190705
